FAERS Safety Report 7714211-0 (Version None)
Quarter: 2011Q3

REPORT INFORMATION
  Report Type: 
  Country: None (occurrence: None)
  Receive Date: 20110829
  Receipt Date: 20110817
  Transmission Date: 20111222
  Serious: No
  Sender: FDA-Public Use
  Company Number: US-BIOGENIDEC-2011BI021998

PATIENT
  Sex: Female

DRUGS (3)
  1. TYSABRI [Suspect]
     Indication: MULTIPLE SCLEROSIS
     Route: 042
     Dates: start: 20110511, end: 20110608
  2. AVONEX [Concomitant]
     Indication: MULTIPLE SCLEROSIS
     Route: 030
     Dates: start: 20070501
  3. TYSABRI [Suspect]
     Route: 042
     Dates: start: 20110613, end: 20110613

REACTIONS (6)
  - INFLUENZA LIKE ILLNESS [None]
  - HEART RATE INCREASED [None]
  - VOMITING [None]
  - INFUSION RELATED REACTION [None]
  - DRUG SPECIFIC ANTIBODY PRESENT [None]
  - NAUSEA [None]
